FAERS Safety Report 6554847-6 (Version None)
Quarter: 2010Q1

REPORT INFORMATION
  Report Type: 
  Country: None (occurrence: None)
  Receive Date: 20100125
  Receipt Date: 20100108
  Transmission Date: 20100710
  Serious: Yes (Hospitalization, Other)
  Sender: FDA-Public Use
  Company Number: MC201000012

PATIENT
  Age: 56 Year
  Sex: Female

DRUGS (9)
  1. ANGIOMAX [Suspect]
     Indication: PERCUTANEOUS CORONARY INTERVENTION
     Dosage: 87 MG, BOLUS, INTRAVENOUS; 203 MG, HR, INTRAVENOUS
     Route: 042
     Dates: start: 20100107, end: 20100107
  2. ATORVASTATIN CALCIUM [Concomitant]
  3. TELMISARTAN [Concomitant]
  4. HYDROCHLOROTHIAZIDE [Concomitant]
  5. FELODIPINE [Concomitant]
  6. METOPROLOL TARTRATE [Concomitant]
  7. FONDAPARINUX (FONDAPARINUX) [Concomitant]
  8. CLOPIDOGREL [Concomitant]
  9. ASPIRIN [Concomitant]

REACTIONS (2)
  - CORONARY ARTERY THROMBOSIS [None]
  - HAEMODYNAMIC INSTABILITY [None]
